FAERS Safety Report 4290895-7 (Version None)
Quarter: 2004Q1

REPORT INFORMATION
  Report Type: 
  Country: None (occurrence: None)
  Receive Date: 20040209
  Receipt Date: 20040127
  Transmission Date: 20041129
  Serious: Yes (Hospitalization)
  Sender: FDA-Public Use
  Company Number: 8005071

PATIENT
  Age: 23 Year
  Sex: Male
  Weight: 50 kg

DRUGS (1)
  1. KEPPRA [Suspect]
     Indication: CONVULSION
     Dosage: 500 MG PO
     Route: 048
     Dates: start: 20030301

REACTIONS (3)
  - ANAEMIA MACROCYTIC [None]
  - LEUKOPENIA [None]
  - THROMBOCYTOPENIA [None]
